FAERS Safety Report 21672173 (Version 1)
Quarter: 2022Q4

REPORT INFORMATION
  Report Type: Report from Study
  Country: US (occurrence: US)
  Receive Date: 20221202
  Receipt Date: 20221202
  Transmission Date: 20230113
  Serious: No
  Sender: FDA-Public Use
  Company Number: US-ABBVIE-4197985

PATIENT
  Sex: Male

DRUGS (3)
  1. RINVOQ [Suspect]
     Active Substance: UPADACITINIB
     Indication: Rheumatoid arthritis
     Route: 048
  2. Moderna Covid-19 vaciine [Concomitant]
     Indication: COVID-19 immunisation
     Dosage: 1 IN 1 ONCE (1ST DOSE)
     Route: 030
     Dates: start: 2021, end: 2021
  3. Moderna Covid-19 vaciine [Concomitant]
     Indication: COVID-19 immunisation
     Dosage: 1 IN 1 ONCE (2ND DOSE)
     Route: 030
     Dates: start: 2021, end: 2021

REACTIONS (4)
  - Haemorrhoids [Unknown]
  - Chest pain [Unknown]
  - Haematochezia [Unknown]
  - Dizziness [Unknown]
